FAERS Safety Report 4309331-7 (Version None)
Quarter: 2004Q1

REPORT INFORMATION
  Report Type: 
  Country: None (occurrence: None)
  Receive Date: 20040302
  Receipt Date: 20040223
  Transmission Date: 20041129
  Serious: Yes (Death, Hospitalization)
  Sender: FDA-Public Use
  Company Number: FR-GLAXOSMITHKLINE-B0324197A

PATIENT
  Age: 55 Year
  Sex: Female

DRUGS (5)
  1. FORTUM [Suspect]
     Indication: SEPTIC SHOCK
     Route: 042
     Dates: start: 20031222, end: 20040103
  2. CIFLOX [Suspect]
     Indication: SEPTIC SHOCK
     Route: 042
     Dates: start: 20031222, end: 20040103
  3. ZYVOXID [Suspect]
     Indication: SEPTIC SHOCK
     Route: 042
     Dates: start: 20031222, end: 20040103
  4. HEPARIN SODIUM [Suspect]
     Indication: MYOCARDIAL INFARCTION
     Route: 042
     Dates: start: 20031209
  5. DANAPAROID SODIUM [Concomitant]
     Dates: start: 20031213

REACTIONS (6)
  - ANURIA [None]
  - DEATH [None]
  - HAEMODIALYSIS [None]
  - RENAL FAILURE ACUTE [None]
  - SEPTIC SHOCK [None]
  - THROMBOCYTOPENIA [None]
